FAERS Safety Report 8457758-4 (Version None)
Quarter: 2012Q2

REPORT INFORMATION
  Report Type: 
  Country: None (occurrence: None)
  Receive Date: 20120615
  Receipt Date: 20120615
  Transmission Date: 20120825
  Serious: No
  Sender: FDA-Public Use
  Company Number: None

PATIENT
  Sex: Male
  Weight: 80.2867 kg

DRUGS (4)
  1. CRESTOR [Concomitant]
  2. PRAVASTATIN [Concomitant]
  3. PAROXETINE HCL [Suspect]
     Indication: OBSESSIVE-COMPULSIVE DISORDER
     Dosage: 1 TABLET DAILY PO
     Route: 048
     Dates: start: 20110101, end: 20120101
  4. PAROXETINE [Suspect]
     Dosage: 1 TABLET DAILY PO
     Route: 048
     Dates: start: 20110101, end: 20120101

REACTIONS (2)
  - PRODUCT SUBSTITUTION ISSUE [None]
  - WITHDRAWAL SYNDROME [None]
